FAERS Safety Report 15997051 (Version 1)
Quarter: 2019Q1

REPORT INFORMATION
  Report Type: Spontaneous
  Country: US (occurrence: US)
  Receive Date: 20190222
  Receipt Date: 20190222
  Transmission Date: 20190418
  Serious: Yes (Other)
  Sender: FDA-Public Use
  Company Number: US-ASTRAZENECA-2019SE26654

PATIENT
  Sex: Female

DRUGS (3)
  1. FASLODEX [Suspect]
     Active Substance: FULVESTRANT
     Route: 030
     Dates: start: 20180614
  2. IBRANCE [Suspect]
     Active Substance: PALBOCICLIB
     Indication: BREAST CANCER FEMALE
     Dosage: 125.0MG UNKNOWN
     Route: 048
     Dates: start: 20180614
  3. TAMOXIFEN [Suspect]
     Active Substance: TAMOXIFEN
     Route: 048

REACTIONS (17)
  - Metastases to bone [Unknown]
  - Pain [Unknown]
  - Malignant pleural effusion [Unknown]
  - Invasive lobular breast carcinoma [Unknown]
  - Constipation [Unknown]
  - Metastases to lymph nodes [Unknown]
  - Hypercalcaemia [Unknown]
  - Gastrointestinal disorder [Unknown]
  - Back pain [Unknown]
  - Respiratory failure [Unknown]
  - Dizziness [Unknown]
  - Dyspnoea [Unknown]
  - Breast mass [Unknown]
  - Asthenia [Unknown]
  - Peripheral swelling [Unknown]
  - Fatigue [Unknown]
  - Hypoxia [Unknown]

NARRATIVE: CASE EVENT DATE: 201806
